FAERS Safety Report 6402986-2 (Version None)
Quarter: 2009Q4

REPORT INFORMATION
  Report Type: 
  Country: None (occurrence: None)
  Receive Date: 20091016
  Receipt Date: 20091006
  Transmission Date: 20100525
  Serious: Yes (Life-Threatening, Hospitalization, Other)
  Sender: FDA-Public Use
  Company Number: FR-BAYER-200934776GPV

PATIENT
  Age: 57 Year
  Sex: Female

DRUGS (18)
  1. ATENOLOL [Suspect]
     Indication: HYPERTENSION
  2. ATENOLOL [Suspect]
     Dates: start: 20070308, end: 20070422
  3. TACROLIMUS [Concomitant]
     Indication: IMMUNOSUPPRESSION
     Dates: start: 20061101
  4. MYCOPHENOLATE MOFETIL [Concomitant]
     Indication: IMMUNOSUPPRESSION
     Dates: start: 20061101, end: 20070201
  5. METHYLPREDNISOLONE [Concomitant]
     Indication: IMMUNOSUPPRESSION
     Route: 042
  6. METHYLPREDNISOLONE [Concomitant]
     Dosage: AS USED: 200-20 MG
     Route: 042
  7. METHYLPREDNISOLONE [Concomitant]
     Route: 042
  8. METHYLPREDNISOLONE [Concomitant]
     Dosage: TAPERED BY 2.5 MG/MONTH TO A MAINTENANCE DOSE OF 0-5 MG/DAY
     Route: 042
  9. PREDNISONE [Concomitant]
     Indication: IMMUNOSUPPRESSION
     Dates: start: 20070406
  10. PREDNISONE [Concomitant]
     Dates: start: 20070408
  11. PREDNISONE [Concomitant]
  12. PREDNISONE [Concomitant]
     Dates: start: 20070407
  13. SULFAMETHOXAZOLE [Concomitant]
     Indication: IMMUNOSUPPRESSION
     Dosage: FOR THE WEEKEND ONLY
  14. ASPIRIN [Concomitant]
     Indication: DRUG USE FOR UNKNOWN INDICATION
  15. URSODIOL [Concomitant]
     Indication: DRUG USE FOR UNKNOWN INDICATION
  16. VALGANCICLOVIR HCL [Concomitant]
     Indication: DRUG USE FOR UNKNOWN INDICATION
     Dates: end: 20070201
  17. ESOMEPRAZOLE [Concomitant]
     Indication: DRUG USE FOR UNKNOWN INDICATION
     Dates: end: 20070201
  18. NICARDIPINE HYDROCHLORIDE [Concomitant]
     Indication: HYPERTENSION

REACTIONS (5)
  - ASTHENIA [None]
  - HEPATIC FAILURE [None]
  - HEPATIC NECROSIS [None]
  - PRURITUS [None]
  - TRANSAMINASES INCREASED [None]
